FAERS Safety Report 5317027-8 (Version None)
Quarter: 2007Q1

REPORT INFORMATION
  Report Type: 
  Country: None (occurrence: None)
  Receive Date: 20070130
  Receipt Date: 20060614
  Transmission Date: 20070707
  Serious: Yes (Other)
  Sender: FDA-Public Use
  Company Number: 200614488US

PATIENT
  Age: 49 Year
  Sex: Female
  Weight: 71.8 kg

DRUGS (6)
  1. KETEK [Suspect]
     Indication: PHARYNGITIS
     Dosage: 400 MG QD PO
     Route: 048
     Dates: start: 20060425, end: 20060429
  2. KETEK [Suspect]
     Indication: UPPER RESPIRATORY TRACT INFECTION
     Dosage: 400 MG QD PO
     Route: 048
     Dates: start: 20060425, end: 20060429
  3. THYROID (ARMOUR THYROID) [Concomitant]
  4. PROGESTEORNE [Concomitant]
  5. VITAMINS [Concomitant]
  6. SUPPLEMENTS [Concomitant]

REACTIONS (2)
  - DIPLOPIA [None]
  - VISION BLURRED [None]
